FAERS Safety Report 9227206 (Version 1)
Quarter: 2013Q2

REPORT INFORMATION
  Report Type: Spontaneous
  Country: BR (occurrence: BR)
  Receive Date: 20130412
  Receipt Date: 20130412
  Transmission Date: 20140414
  Serious: Yes (Other)
  Sender: FDA-Public Use
  Company Number: PHHY2013BR033534

PATIENT
  Age: 55 Year
  Sex: Female
  Weight: 80 kg

DRUGS (5)
  1. ESTALIS [Suspect]
     Indication: MENOPAUSE
     Dosage: 2 DF, WEEKLY
     Route: 062
     Dates: end: 2012
  2. ESTALIS [Suspect]
     Dosage: UNK UKN, UNK
  3. ESTALIS [Suspect]
     Dosage: UNK UKN, UNK
  4. MIFLASONE [Suspect]
     Indication: ASTHMA
     Dosage: UNK UKN, UNK
  5. DIOVAN AMLO FIX [Suspect]
     Indication: HYPERTENSION
     Dosage: 1 DF, QD
     Route: 048

REACTIONS (9)
  - Asthma [Recovered/Resolved]
  - Sinusitis [Recovered/Resolved]
  - Rhinitis [Recovered/Resolved]
  - Panic disorder [Unknown]
  - Poor peripheral circulation [Recovered/Resolved]
  - Irritability [Recovered/Resolved]
  - Pain [Recovered/Resolved]
  - Pain in extremity [Recovered/Resolved]
  - Local swelling [Recovered/Resolved]
